FAERS Safety Report 10285766 (Version 2)
Quarter: 2014Q3

REPORT INFORMATION
  Report Type: Spontaneous
  Country: ES (occurrence: ES)
  Receive Date: 20140709
  Receipt Date: 20140725
  Transmission Date: 20150326
  Serious: Yes (Hospitalization, Other)
  Sender: FDA-Public Use
  Company Number: ES-AMGEN-ESPSP2014050201

PATIENT
  Age: 74 Year
  Sex: Female

DRUGS (6)
  1. TRANKIMAZIN [Concomitant]
     Active Substance: ALPRAZOLAM
     Indication: ANXIETY
     Dosage: 0.5 MG, Q8H
     Route: 048
  2. VENLAFAXINE [Concomitant]
     Active Substance: VENLAFAXINE HYDROCHLORIDE
     Indication: DEPRESSION
     Dosage: 150 MG, QD
     Route: 048
  3. ENALAPRIL [Concomitant]
     Active Substance: ENALAPRIL
     Indication: HYPERTENSION
     Dosage: 20 MG, QD
     Route: 048
  4. LYRICA [Concomitant]
     Active Substance: PREGABALIN
     Indication: DEPRESSION
     Dosage: 75 MG, Q12H
     Route: 048
  5. PROLIA [Suspect]
     Active Substance: DENOSUMAB
     Indication: OSTEOPOROSIS POSTMENOPAUSAL
     Dosage: 60 MG, Q6MO
     Route: 058
     Dates: start: 20140102, end: 20140702
  6. CALCIUM SANDOZ                     /00060701/ [Concomitant]
     Indication: OSTEOPOROSIS POSTMENOPAUSAL
     Dosage: UNK UNK, QD
     Route: 048

REACTIONS (2)
  - Fall [Unknown]
  - Atypical femur fracture [Recovering/Resolving]

NARRATIVE: CASE EVENT DATE: 20140620
